FAERS Safety Report 6859146-0 (Version None)
Quarter: 2010Q3

REPORT INFORMATION
  Report Type: 
  Country: None (occurrence: None)
  Receive Date: 20100719
  Receipt Date: 20080219
  Transmission Date: 20110219
  Serious: No
  Sender: FDA-Public Use
  Company Number: US-PFIZER INC-2008017519

PATIENT
  Sex: Female
  Weight: 84.1 kg

DRUGS (5)
  1. CHANTIX [Suspect]
     Indication: SMOKING CESSATION THERAPY
     Dates: start: 20070501, end: 20070701
  2. TRILEPTAL [Concomitant]
  3. CELEXA [Concomitant]
  4. CLONAZEPAM [Concomitant]
  5. WELLBUTRIN [Concomitant]

REACTIONS (1)
  - HYPOTENSION [None]
